FAERS Safety Report 8362897-2 (Version None)
Quarter: 2012Q2

REPORT INFORMATION
  Report Type: 
  Country: None (occurrence: None)
  Receive Date: 20120514
  Receipt Date: 20120423
  Transmission Date: 20120825
  Serious: Yes (Other)
  Sender: FDA-Public Use
  Company Number: 20120262

PATIENT
  Sex: Female

DRUGS (1)
  1. PROGESTERONE INJ [Suspect]
     Indication: PREGNANCY
     Dosage: 75 MG (1.5CC) DAILY INTRAMUSCULAR
     Route: 030
     Dates: start: 20120307, end: 20120413

REACTIONS (6)
  - ABORTION SPONTANEOUS [None]
  - MATERNAL EXPOSURE DURING PREGNANCY [None]
  - SELF-MEDICATION [None]
  - OFF LABEL USE [None]
  - HAEMORRHAGE [None]
  - PROGESTERONE DECREASED [None]
